FAERS Safety Report 8208596-9 (Version None)
Quarter: 2012Q1

REPORT INFORMATION
  Report Type: 
  Country: None (occurrence: None)
  Receive Date: 20120314
  Receipt Date: 20120313
  Transmission Date: 20120608
  Serious: Yes (Other)
  Sender: FDA-Public Use
  Company Number: IT-GLAXOSMITHKLINE-B0786030A

PATIENT
  Age: 62 Year
  Sex: Female

DRUGS (2)
  1. SIRIO [Concomitant]
  2. REQUIP [Suspect]
     Indication: PARKINSON'S DISEASE
     Route: 048
     Dates: start: 20030101

REACTIONS (11)
  - MEDICATION RESIDUE [None]
  - DYSTONIA [None]
  - DYSPNOEA [None]
  - DEFAECATION URGENCY [None]
  - PRODUCT QUALITY ISSUE [None]
  - DYSKINESIA [None]
  - MUSCLE SPASMS [None]
  - CONSTIPATION [None]
  - FATIGUE [None]
  - MICTURITION URGENCY [None]
  - CYANOSIS [None]
